FAERS Safety Report 4409962-X (Version None)
Quarter: 2004Q3

REPORT INFORMATION
  Report Type: 
  Country: None (occurrence: None)
  Receive Date: 20040726
  Receipt Date: 20040714
  Transmission Date: 20050211
  Serious: Yes (Death, Hospitalization)
  Sender: FDA-Public Use
  Company Number: FR-JNJFOC-20040607384

PATIENT
  Age: 90 Year
  Sex: Male

DRUGS (13)
  1. CONTRAMAL (TRAMADOL HYDROCHLORIDE) TABLETS [Suspect]
     Dosage: 100 MG, 2 IN 1 DAY, ORAL
     Route: 048
     Dates: start: 20040415, end: 20040422
  2. FORTIMEL (ALL OTHER THERAPEUTIC PRODUCTS) [Concomitant]
  3. LANSOYL (PARAFFIN, LIQUID) [Concomitant]
  4. OMEPRAZOLE [Concomitant]
  5. EDUCTYL (EDUCTYL) [Concomitant]
  6. PAROXETINE HCL [Concomitant]
  7. FORLAX (MACROGOL) [Concomitant]
  8. TRIATEC FAIBLE (RAMIPRIL) [Concomitant]
  9. PLAVIX [Concomitant]
  10. POLYTONYL (POLYTONYL) [Concomitant]
  11. LIBRAX [Concomitant]
  12. PRIMERPAN (METOCLOPRAMIDE) [Concomitant]
  13. MOTILYO (DOMPERIDONE) [Concomitant]

REACTIONS (2)
  - FALL [None]
  - INTESTINAL OBSTRUCTION [None]
